FAERS Safety Report 8508469-8 (Version None)
Quarter: 2012Q3

REPORT INFORMATION
  Report Type: 
  Country: None (occurrence: None)
  Receive Date: 20120713
  Receipt Date: 20120706
  Transmission Date: 20120928
  Serious: Yes (Hospitalization)
  Sender: FDA-Public Use
  Company Number: US-BAYER-2011-052325

PATIENT
  Age: 26 Year
  Sex: Female
  Weight: 61.224 kg

DRUGS (4)
  1. ORTHO-CEPT [Concomitant]
     Indication: ABDOMINAL PAIN
  2. METRONIDAZOLE [Concomitant]
  3. YASMIN [Suspect]
     Dosage: UNK
     Dates: start: 20050101, end: 20090101
  4. DARVOCET [Concomitant]
     Indication: ABDOMINAL PAIN

REACTIONS (13)
  - DEPRESSION [None]
  - CHOLECYSTITIS CHRONIC [None]
  - DYSPEPSIA [None]
  - SCAR [None]
  - EMOTIONAL DISORDER [None]
  - FLATULENCE [None]
  - ABDOMINAL DISTENSION [None]
  - ANXIETY [None]
  - PAIN [None]
  - CHOLECYSTECTOMY [None]
  - DIARRHOEA [None]
  - CONSTIPATION [None]
  - INJURY [None]
